FAERS Safety Report 8473980-5 (Version None)
Quarter: 2012Q2

REPORT INFORMATION
  Report Type: 
  Country: None (occurrence: None)
  Receive Date: 20120628
  Receipt Date: 20120409
  Transmission Date: 20120825
  Serious: Yes (Death)
  Sender: FDA-Public Use
  Company Number: US-MYLANLABS-2012S1004868

PATIENT
  Age: 53 Year
  Sex: Male

DRUGS (8)
  1. CLOZAPINE [Suspect]
  2. FLUOXETINE [Concomitant]
  3. CLOZAPINE [Suspect]
     Indication: SCHIZOPHRENIA, PARANOID TYPE
  4. HYDROCODONE BITARTRATE AND ACETAMINOPHEN [Concomitant]
     Dosage: 10MG/325MG 5 QD PRN
  5. OXYCODONE HCL [Concomitant]
  6. ENALAPRIL MALEATE [Concomitant]
  7. AMITRIPTYLINE HCL [Concomitant]
  8. CLOZAPINE [Suspect]

REACTIONS (1)
  - PNEUMONIA [None]
